FAERS Safety Report 13934257 (Version 1)
Quarter: 2017Q3

REPORT INFORMATION
  Report Type: Spontaneous
  Country: CA (occurrence: CA)
  Receive Date: 20170905
  Receipt Date: 20170905
  Transmission Date: 20171127
  Serious: Yes (Other)
  Sender: FDA-Public Use
  Company Number: CA-ROCHE-1983718

PATIENT
  Age: 55 Year
  Sex: Female

DRUGS (1)
  1. TECENTRIQ [Suspect]
     Active Substance: ATEZOLIZUMAB
     Indication: TRANSITIONAL CELL CARCINOMA METASTATIC
     Route: 065
     Dates: start: 20170807

REACTIONS (11)
  - Platelet count decreased [Unknown]
  - Thyroxine increased [Unknown]
  - Encephalitis [Unknown]
  - Pyrexia [Recovered/Resolved]
  - Fatigue [Recovered/Resolved]
  - Musculoskeletal stiffness [Recovered/Resolved]
  - Blood thyroid stimulating hormone decreased [Unknown]
  - Headache [Recovered/Resolved]
  - Haemoglobin decreased [Unknown]
  - Vomiting [Recovered/Resolved]
  - C-reactive protein increased [Unknown]

NARRATIVE: CASE EVENT DATE: 20170817
